FAERS Safety Report 12465527 (Version 3)
Quarter: 2016Q4

REPORT INFORMATION
  Report Type: Spontaneous
  Country: US (occurrence: US)
  Receive Date: 20160614
  Receipt Date: 20161011
  Transmission Date: 20170207
  Serious: Yes (Hospitalization, Other)
  Sender: FDA-Public Use
  Company Number: US-009507513-1606USA006568

PATIENT
  Sex: Female
  Weight: 75.28 kg

DRUGS (3)
  1. NUVARING [Suspect]
     Active Substance: ETHINYL ESTRADIOL\ETONOGESTREL
     Indication: CONTRACEPTION
     Dosage: 1 DF, Q3W
     Route: 067
     Dates: start: 201403, end: 20140620
  2. ZOLOFT [Concomitant]
     Active Substance: SERTRALINE HYDROCHLORIDE
     Indication: DEPRESSION
     Dosage: 150 MG, QD
     Route: 048
     Dates: start: 2007, end: 2014
  3. CELEXA [Concomitant]
     Active Substance: CITALOPRAM HYDROBROMIDE
     Indication: DEPRESSION
     Dosage: 40 MG, QD
     Route: 048
     Dates: start: 2014, end: 2016

REACTIONS (16)
  - Pulmonary embolism [Unknown]
  - Depression [Unknown]
  - Intervertebral disc protrusion [Unknown]
  - Insomnia [Unknown]
  - Hand fracture [Unknown]
  - Facial bones fracture [Unknown]
  - Diabetes mellitus [Unknown]
  - Maternal exposure before pregnancy [Recovered/Resolved]
  - Abortion spontaneous [Unknown]
  - Anaemia [Unknown]
  - Contusion [Recovering/Resolving]
  - Road traffic accident [Unknown]
  - Swelling [Unknown]
  - Anxiety [Unknown]
  - Urinary tract infection bacterial [Unknown]
  - Bronchitis [Unknown]

NARRATIVE: CASE EVENT DATE: 20140617
